FAERS Safety Report 10407279 (Version 3)
Quarter: 2014Q3

REPORT INFORMATION
  Report Type: Spontaneous
  Country: US (occurrence: US)
  Receive Date: 20140825
  Receipt Date: 20140915
  Transmission Date: 20150326
  Serious: No
  Sender: FDA-Public Use
  Company Number: US-PFIZER INC-2014235760

PATIENT
  Sex: Female

DRUGS (1)
  1. CHANTIX [Suspect]
     Active Substance: VARENICLINE TARTRATE
     Dosage: UNK
     Dates: start: 2014

REACTIONS (4)
  - Anxiety [Unknown]
  - Feeling abnormal [Unknown]
  - Myalgia [Unknown]
  - Insomnia [Unknown]

NARRATIVE: CASE EVENT DATE: 2014
